FAERS Safety Report 6909487-3 (Version None)
Quarter: 2010Q3

REPORT INFORMATION
  Report Type: 
  Country: None (occurrence: None)
  Receive Date: 20100803
  Receipt Date: 20100723
  Transmission Date: 20110219
  Serious: Yes (Other)
  Sender: FDA-Public Use
  Company Number: 2010SP040485

PATIENT
  Sex: Male

DRUGS (13)
  1. MIRTAZAPINE [Suspect]
     Indication: PRODUCT USED FOR UNKNOWN INDICATION
  2. AMITRIPTYLINE HCL [Suspect]
     Indication: PRODUCT USED FOR UNKNOWN INDICATION
  3. OXYCONTIN [Suspect]
     Indication: PRODUCT USED FOR UNKNOWN INDICATION
  4. OXYCODONE HCL [Suspect]
     Indication: PRODUCT USED FOR UNKNOWN INDICATION
  5. AKARIN [Concomitant]
  6. NORTRIPTYLINE HCL [Concomitant]
  7. ACETAMINOPHEN [Concomitant]
  8. LAMOTRIGINE [Concomitant]
  9. IMOZOP [Concomitant]
  10. NEXIUM [Concomitant]
  11. SPIRIVA [Concomitant]
  12. TERBASMIN [Concomitant]
  13. SYMBICORT [Concomitant]

REACTIONS (2)
  - DENTAL CARIES [None]
  - DRY MOUTH [None]
